FAERS Safety Report 25855997 (Version 1)
Quarter: 2025Q3

REPORT INFORMATION
  Report Type: Spontaneous
  Country: US (occurrence: US)
  Receive Date: 20250928
  Receipt Date: 20250928
  Transmission Date: 20251021
  Serious: No
  Sender: JOHNSON AND JOHNSON
  Company Number: US-JNJFOC-20250928650

PATIENT
  Age: 28 Year
  Sex: Female

DRUGS (1)
  1. DARZALEX [Suspect]
     Active Substance: DARATUMUMAB
     Indication: Transplant rejection

REACTIONS (7)
  - Swelling of nose [Unknown]
  - Swelling face [Unknown]
  - Vomiting projectile [Unknown]
  - Off label use [Unknown]
  - Adverse event [Unknown]
  - Underdose [Unknown]
  - Product storage error [Unknown]

NARRATIVE: CASE EVENT DATE: 20250917
